FAERS Safety Report 8724424 (Version 2)
Quarter: 2012Q4

REPORT INFORMATION
  Report Type: 
  Country: NL (occurrence: NL)
  Receive Date: 20120815
  Receipt Date: 20120918
  Transmission Date: 20130627
  Serious: Yes (Death)
  Sender: FDA-Public Use
  Company Number: PHHY2012NL070105

PATIENT
  Sex: Male

DRUGS (2)
  1. ZOMETA [Suspect]
     Indication: PROSTATE CANCER METASTATIC
     Dosage: 4 mg/100ml; 1x per 28 days
  2. ZOMETA [Suspect]
     Dosage: 4 mg/100ml; 1x per 28 days
     Dates: start: 20120713

REACTIONS (2)
  - Prostate cancer [Fatal]
  - Malaise [Unknown]
